FAERS Safety Report 17237482 (Version 1)
Quarter: 2020Q1

REPORT INFORMATION
  Report Type: Spontaneous
  Country: FR (occurrence: FR)
  Receive Date: 20200106
  Receipt Date: 20200106
  Transmission Date: 20200409
  Serious: Yes (Hospitalization)
  Sender: FDA-Public Use
  Company Number: FR-JNJFOC-20200100860

PATIENT
  Age: 72 Year
  Sex: Female

DRUGS (12)
  1. SOLUPRED                           /00016217/ [Concomitant]
     Active Substance: PREDNISOLONE SODIUM METAZOATE
     Route: 048
  2. XARELTO [Concomitant]
     Active Substance: RIVAROXABAN
     Indication: PRODUCT USED FOR UNKNOWN INDICATION
     Route: 048
     Dates: end: 20190118
  3. LEVOTHYROX [Concomitant]
     Active Substance: LEVOTHYROXINE
     Route: 048
  4. GRANOCYTE [Concomitant]
     Active Substance: LENOGRASTIM
     Dosage: ; CYCLICAL
     Route: 058
  5. DIFFU K [Concomitant]
     Active Substance: POTASSIUM CHLORIDE
     Route: 048
  6. DOLIPRANE [Concomitant]
     Active Substance: ACETAMINOPHEN
     Route: 048
  7. DUROGESIC [Suspect]
     Active Substance: FENTANYL
     Indication: MALIGNANT MELANOMA
     Route: 062
  8. OXAZEPAM. [Concomitant]
     Active Substance: OXAZEPAM
     Route: 048
  9. LANSOPRAZOLE. [Concomitant]
     Active Substance: LANSOPRAZOLE
     Route: 048
  10. PRIMPERAN [Concomitant]
     Active Substance: METOCLOPRAMIDE HYDROCHLORIDE
     Route: 048
  11. DETICENE [Concomitant]
     Active Substance: DACARBAZINE
     Route: 042
  12. SPECIAFOLDINE [Concomitant]
     Active Substance: FOLIC ACID
     Route: 048

REACTIONS (4)
  - Off label use [Unknown]
  - Constipation [Recovered/Resolved]
  - Product use in unapproved indication [Unknown]
  - Faecaloma [Recovered/Resolved]

NARRATIVE: CASE EVENT DATE: 20190116
